FAERS Safety Report 17786154 (Version 1)
Quarter: 2020Q2

REPORT INFORMATION
  Report Type: Report from Study
  Country: None (occurrence: US)
  Receive Date: 20200513
  Receipt Date: 20200513
  Transmission Date: 20200714
  Serious: Yes (Hospitalization)
  Sender: FDA-Public Use
  Company Number: US-ABBVIE-20K-163-3401351-00

PATIENT
  Sex: Female

DRUGS (1)
  1. SKYRIZI [Suspect]
     Active Substance: RISANKIZUMAB-RZAA
     Indication: PRODUCT USED FOR UNKNOWN INDICATION
     Dosage: ON WEEK 0 AND WEEK 4, STARTER DOSAGE TYPE: SKYRIZI 75MG/0.83ML SYRINGE
     Route: 058

REACTIONS (1)
  - Localised infection [Not Recovered/Not Resolved]
